FAERS Safety Report 7821071-6 (Version None)
Quarter: 2011Q4

REPORT INFORMATION
  Report Type: 
  Country: None (occurrence: None)
  Receive Date: 20111018
  Receipt Date: 20101223
  Transmission Date: 20120403
  Serious: No
  Sender: FDA-Public Use
  Company Number: US-ASTRAZENECA-2010SE60655

PATIENT
  Age: 82 Year
  Sex: Female
  Weight: 64.4 kg

DRUGS (9)
  1. TYLOX [Concomitant]
  2. LISINOPRIL [Concomitant]
  3. CARDIZEM [Concomitant]
  4. SYMBICORT [Suspect]
     Indication: CHRONIC OBSTRUCTIVE PULMONARY DISEASE
     Dosage: 640 MCG TWO TIMES A DAY
     Route: 055
  5. NEXIUM [Concomitant]
  6. HYDRALAZINE HCL [Concomitant]
  7. VITAMIN D [Concomitant]
  8. SPIRIVA [Concomitant]
  9. SYNTHROID [Concomitant]

REACTIONS (2)
  - DRY MOUTH [None]
  - DYSPHONIA [None]
